FAERS Safety Report 6719653-8 (Version None)
Quarter: 2010Q2

REPORT INFORMATION
  Report Type: 
  Country: None (occurrence: None)
  Receive Date: 20100511
  Receipt Date: 20100505
  Transmission Date: 20101027
  Serious: Yes (Other)
  Sender: FDA-Public Use
  Company Number: B0651332A

PATIENT
  Age: 25 Year
  Sex: Male

DRUGS (1)
  1. NIQUITIN CQ [Suspect]
     Route: 062
     Dates: start: 20100501, end: 20100504

REACTIONS (6)
  - ABNORMAL DREAMS [None]
  - AGGRESSION [None]
  - COUGH [None]
  - EPISTAXIS [None]
  - OBSESSIVE THOUGHTS [None]
  - SLEEP DISORDER [None]
